FAERS Safety Report 9556939 (Version 1)
Quarter: 2013Q3

REPORT INFORMATION
  Report Type: Spontaneous
  Country: US (occurrence: US)
  Receive Date: 20130926
  Receipt Date: 20130926
  Transmission Date: 20140515
  Serious: Yes (Hospitalization, Other)
  Sender: FDA-Public Use
  Company Number: US-BAYER-2013-115354

PATIENT
  Age: 32 Year
  Sex: Female

DRUGS (10)
  1. YAZ [Suspect]
     Indication: MENSTRUAL CYCLE MANAGEMENT
  2. YASMIN [Suspect]
  3. OCELLA [Suspect]
  4. LISINOPRIL [Concomitant]
     Dosage: 10 MG, TAB
     Dates: start: 20080428
  5. EFFEXOR XR [Concomitant]
     Dosage: 150 MG, CAP
     Dates: start: 20080428
  6. TRILYTE [Concomitant]
     Dosage: UNK
     Dates: start: 20080405
  7. MICRONOR [Concomitant]
  8. HYDROCHLOROTHIAZIDE [Concomitant]
  9. ACETAMINOPHEN W/HYDROCODONE [Concomitant]
  10. IRON [IRON] [Concomitant]

REACTIONS (3)
  - Pulmonary embolism [Recovered/Resolved]
  - Deep vein thrombosis [Recovered/Resolved]
  - Cholelithiasis [None]
